FAERS Safety Report 10192072 (Version 1)
Quarter: 2014Q2

REPORT INFORMATION
  Report Type: Spontaneous
  Country: NO (occurrence: NO)
  Receive Date: 20140523
  Receipt Date: 20140523
  Transmission Date: 20141212
  Serious: Yes (Death, Other)
  Sender: FDA-Public Use
  Company Number: NO-JNJFOC-20140508224

PATIENT
  Sex: 0

DRUGS (5)
  1. DOXORUBICIN HYDROCHLORIDE [Suspect]
     Indication: NON-HODGKIN^S LYMPHOMA
     Dosage: 8, 15, 22
     Route: 065
  2. PREDNISONE [Suspect]
     Indication: NON-HODGKIN^S LYMPHOMA
     Dosage: 1 - 29, TAPER TO DAY 35
     Route: 048
  3. VINCRISTINE [Suspect]
     Indication: NON-HODGKIN^S LYMPHOMA
     Dosage: MAX 2.0 MG; 1, 8, 15, 22, 29
     Route: 042
  4. L-ASPARAGINASE [Suspect]
     Indication: NON-HODGKIN^S LYMPHOMA
     Dosage: 8-21
     Route: 042
  5. CYCLOPHOSPHAMIDE [Suspect]
     Indication: NON-HODGKIN^S LYMPHOMA
     Dosage: 15, 22, 29
     Route: 042

REACTIONS (9)
  - Toxicity to various agents [Fatal]
  - Embolism [Unknown]
  - Haematotoxicity [Unknown]
  - Bacteraemia [Unknown]
  - Polyneuropathy [Unknown]
  - Deep vein thrombosis [Unknown]
  - Pulmonary embolism [Unknown]
  - Intracranial venous sinus thrombosis [Unknown]
  - Thrombosis [Unknown]
